FAERS Safety Report 8062910-6 (Version None)
Quarter: 2012Q1

REPORT INFORMATION
  Report Type: 
  Country: None (occurrence: None)
  Receive Date: 20120123
  Receipt Date: 20120123
  Transmission Date: 20120608
  Serious: Yes (Hospitalization, Disabling)
  Sender: FDA-Public Use
  Company Number: None

PATIENT
  Age: 34 Year
  Sex: Female
  Weight: 107.95 kg

DRUGS (2)
  1. ATRACURIUM BESYLATE [Suspect]
     Indication: ACUTE MYELOID LEUKAEMIA
     Dosage: 60 MG
     Route: 048
     Dates: start: 20101210, end: 20101220
  2. ATRACURIUM BESYLATE [Concomitant]
     Dosage: 30 MG
     Route: 048
     Dates: start: 20101227, end: 20101230

REACTIONS (6)
  - BENIGN INTRACRANIAL HYPERTENSION [None]
  - HEADACHE [None]
  - VISUAL FIELD DEFECT [None]
  - HYPERACUSIS [None]
  - PHOTOPHOBIA [None]
  - DIPLOPIA [None]
